FAERS Safety Report 19589260 (Version 1)
Quarter: 2021Q3

REPORT INFORMATION
  Report Type: Spontaneous
  Country: US (occurrence: US)
  Receive Date: 20210721
  Receipt Date: 20210721
  Transmission Date: 20211014
  Serious: No
  Sender: FDA-Public Use
  Company Number: US-PFIZER INC-2021488621

PATIENT
  Age: 49 Year
  Sex: Female

DRUGS (1)
  1. MEDROXYPROGESTERONE ACETATE. [Suspect]
     Active Substance: MEDROXYPROGESTERONE ACETATE
     Indication: MENSTRUAL DISORDER
     Dosage: UNK

REACTIONS (5)
  - Palpitations [Unknown]
  - Anxiety disorder [Unknown]
  - Off label use [Unknown]
  - Paraesthesia [Unknown]
  - Abdominal distension [Unknown]
